FAERS Safety Report 10094144 (Version 2)
Quarter: 2014Q3

REPORT INFORMATION
  Report Type: Spontaneous
  Country: GB (occurrence: GB)
  Receive Date: 20140422
  Receipt Date: 20140709
  Transmission Date: 20150326
  Serious: Yes (Other)
  Sender: FDA-Public Use
  Company Number: GB-BRISTOL-MYERS SQUIBB COMPANY-20626875

PATIENT
  Age: 53 Year
  Sex: Male
  Weight: 133 kg

DRUGS (6)
  1. DULOXETINE HCL [Concomitant]
     Active Substance: DULOXETINE HYDROCHLORIDE
     Indication: NEUROPATHY PERIPHERAL
     Dosage: THE PATIENT WAS NOT TAKING DULOXETINE ON THE DAYS HE WAS WORKING.
  2. FORXIGA [Suspect]
     Active Substance: DAPAGLIFLOZIN
     Indication: TYPE 2 DIABETES MELLITUS
     Route: 048
     Dates: start: 20130828
  3. RAMIPRIL. [Interacting]
     Active Substance: RAMIPRIL
     Indication: MICROALBUMINURIA
     Dosage: 1.25MG-07OCT13?2.5MG-30OCT13?5MG-31DEC13?7.5MG-28JAN14?10MG:17FEB14
     Route: 048
     Dates: start: 20140217
  4. CIALIS [Concomitant]
     Active Substance: TADALAFIL
  5. RAMIPRIL. [Interacting]
     Active Substance: RAMIPRIL
     Indication: TYPE 2 DIABETES MELLITUS
     Dosage: 1.25MG-07OCT13?2.5MG-30OCT13?5MG-31DEC13?7.5MG-28JAN14?10MG:17FEB14
     Route: 048
     Dates: start: 20140217
  6. LOPERAMIDE [Concomitant]
     Active Substance: LOPERAMIDE

REACTIONS (3)
  - Loss of consciousness [Recovered/Resolved]
  - Hypotension [Recovered/Resolved]
  - Drug interaction [Unknown]

NARRATIVE: CASE EVENT DATE: 20140219
